FAERS Safety Report 8968820 (Version 1)
Quarter: 2012Q4

REPORT INFORMATION
  Report Type: 
  Country: AU (occurrence: AU)
  Receive Date: 20121218
  Receipt Date: 20121218
  Transmission Date: 20130627
  Serious: Yes (Death, Other)
  Sender: FDA-Public Use
  Company Number: AU-009507513-1212AUS004274

PATIENT
  Age: 37 Year
  Sex: Male

DRUGS (4)
  1. MIRTAZAPINE [Suspect]
  2. TRAMADOL HYDROCHLORIDE [Suspect]
  3. ACETAMINOPHEN [Suspect]
  4. CODEINE [Suspect]

REACTIONS (3)
  - Toxicity to various agents [Fatal]
  - Multi-organ failure [Fatal]
  - Hypoxia [Fatal]
